FAERS Safety Report 7905138-X (Version None)
Quarter: 2011Q4

REPORT INFORMATION
  Report Type: 
  Country: None (occurrence: None)
  Receive Date: 20111109
  Receipt Date: 20111025
  Transmission Date: 20120403
  Serious: Yes (Other)
  Sender: FDA-Public Use
  Company Number: US-JUTA GMBH-2011-18646

PATIENT
  Age: 38 Year
  Sex: Male

DRUGS (5)
  1. PROPOFOL [Suspect]
     Indication: ANAESTHESIA
  2. CISATRACURIUM BESYLATE [Suspect]
     Indication: ANAESTHESIA
  3. SEVOFLURANE [Suspect]
     Indication: ANAESTHESIA
  4. REMIFENTANIL [Suspect]
     Indication: ANAESTHESIA
     Dosage: 5 UG
     Route: 008
  5. MORPHINE SULFATE [Suspect]
     Indication: ANAESTHESIA

REACTIONS (1)
  - ELECTROCARDIOGRAM ST SEGMENT ELEVATION [None]
